FAERS Safety Report 5301444-6 (Version None)
Quarter: 2007Q2

REPORT INFORMATION
  Report Type: 
  Country: None (occurrence: None)
  Receive Date: 20070412
  Receipt Date: 20070402
  Transmission Date: 20071010
  Serious: Yes (Other)
  Sender: FDA-Public Use
  Company Number: 239288

PATIENT
  Age: 21 Year
  Sex: Male
  Weight: 56.4 kg

DRUGS (3)
  1. NUTROPIN AQ [Suspect]
     Indication: NEOPLASM MALIGNANT
     Dosage: SEE IMAGE
     Dates: start: 19960312
  2. NUTROPIN AQ [Suspect]
     Indication: NEOPLASM MALIGNANT
     Dosage: SEE IMAGE
     Dates: start: 20050101
  3. ULTRACET (ACETAMINOPHEN, TRAMADOL HYDROCHLORIDE) [Concomitant]

REACTIONS (1)
  - MENINGIOMA [None]
